FAERS Safety Report 6507216 (Version 2)
Quarter: 2013Q3

REPORT INFORMATION
  Report Type: Spontaneous
  Country: US (occurrence: US)
  Receive Date: 20071217
  Receipt Date: 20130927
  Transmission Date: 20140515
  Serious: No
  Sender: FDA-Public Use
  Company Number: US-ASTRAZENECA-2007UW23656

PATIENT
  Age: 72 Year
  Sex: Female
  Weight: 72.6 kg

DRUGS (8)
  1. NEXIUM [Suspect]
     Indication: GASTROOESOPHAGEAL REFLUX DISEASE
     Route: 048
     Dates: start: 201308
  2. CRESTOR [Suspect]
     Indication: BLOOD CHOLESTEROL INCREASED
     Dosage: TWO DOSES OF 5 MG (SPLIT TABLETS), 5 MG TWICE A WEEK
     Route: 048
  3. SOMA [Concomitant]
  4. MAXIDE [Concomitant]
  5. CARDIA XT [Concomitant]
  6. COLON HEALTH [Concomitant]
  7. STOOL SOFTENER [Concomitant]
  8. PANTOPROZOLE [Concomitant]

REACTIONS (7)
  - Ocular hyperaemia [Unknown]
  - Eye irritation [Unknown]
  - Chest discomfort [Recovered/Resolved]
  - Food allergy [Unknown]
  - Paraesthesia oral [Recovered/Resolved]
  - Lip swelling [Unknown]
  - Intentional drug misuse [Unknown]
